FAERS Safety Report 17677420 (Version 1)
Quarter: 2020Q2

REPORT INFORMATION
  Report Type: Spontaneous
  Country: US (occurrence: US)
  Receive Date: 20200415
  Receipt Date: 20200415
  Transmission Date: 20200714
  Serious: Yes (Hospitalization)
  Sender: FDA-Public Use
  Company Number: None

PATIENT
  Age: 21 Year
  Sex: Female

DRUGS (26)
  1. BUPROPN HCL [Concomitant]
     Active Substance: BUPROPION HYDROCHLORIDE
  2. NICOTINE TD [Concomitant]
  3. SMZ/ TMP DS [Concomitant]
     Active Substance: SULFAMETHOXAZOLE\TRIMETHOPRIM
  4. ALBUTEROL NEB [Concomitant]
     Active Substance: ALBUTEROL
  5. CYCLOBENZAPR [Concomitant]
     Active Substance: CYCLOBENZAPRINE
  6. DOXYCYC MONO [Concomitant]
     Active Substance: DOXYCYCLINE
  7. IPRATROPIUM/SOL ALBUTER [Concomitant]
  8. PULMICORT TURBUHALER [Concomitant]
     Active Substance: BUDESONIDE
  9. VITAMIN D [Concomitant]
     Active Substance: VITAMIN D NOS
  10. NYSTATIN. [Concomitant]
     Active Substance: NYSTATIN
  11. PANTOPRAZOLE [Concomitant]
     Active Substance: PANTOPRAZOLE
  12. NUCALA [Suspect]
     Active Substance: MEPOLIZUMAB
     Dosage: ?          OTHER DOSE:1 PEN ;?
     Route: 058
  13. LEVOFLOXACIN. [Concomitant]
     Active Substance: LEVOFLOXACIN
  14. MONTELUKAST [Concomitant]
     Active Substance: MONTELUKAST SODIUM
  15. PREDNISONE. [Concomitant]
     Active Substance: PREDNISONE
  16. AZITHROMYCIN ANHYDROUS. [Concomitant]
     Active Substance: AZITHROMYCIN ANHYDROUS
  17. DICLOFENAC [Concomitant]
     Active Substance: DICLOFENAC
  18. KETOROLAC [Concomitant]
     Active Substance: KETOROLAC TROMETHAMINE
  19. PROAIR HFA [Concomitant]
     Active Substance: ALBUTEROL SULFATE
  20. SPIRIVA [Concomitant]
     Active Substance: TIOTROPIUM BROMIDE MONOHYDRATE
  21. BENZONATATE. [Concomitant]
     Active Substance: BENZONATATE
  22. CLARITHROMYC [Concomitant]
  23. FLUCONAZOLE. [Concomitant]
     Active Substance: FLUCONAZOLE
  24. HYDROCO/APAP [Concomitant]
     Active Substance: ACETAMINOPHEN\HYDROCODONE
  25. METHYLPRED [Concomitant]
     Active Substance: METHYLPREDNISOLONE
  26. GABAPENTIN. [Concomitant]
     Active Substance: GABAPENTIN

REACTIONS (1)
  - Hospitalisation [None]

NARRATIVE: CASE EVENT DATE: 20200414
